FAERS Safety Report 9069118 (Version 2)
Quarter: 2013Q1

REPORT INFORMATION
  Report Type: Spontaneous
  Country: JP (occurrence: JP)
  Receive Date: 20130215
  Receipt Date: 20130220
  Transmission Date: 20140127
  Serious: No
  Sender: FDA-Public Use
  Company Number: JP-ASTELLAS-2013JP001693

PATIENT
  Age: 64 Year
  Sex: Male

DRUGS (6)
  1. BETANIS [Suspect]
     Indication: HYPERTONIC BLADDER
     Dosage: 50 MG, UNKNOWN/D
     Route: 048
     Dates: start: 20130123, end: 20130130
  2. VESICARE [Suspect]
     Indication: HYPERTONIC BLADDER
     Route: 048
  3. URIEF [Concomitant]
     Dosage: UNK
     Route: 048
  4. FLIVAS [Concomitant]
     Route: 048
  5. CERNILTON                          /00521401/ [Concomitant]
     Route: 048
  6. DETRUSITOL [Concomitant]
     Indication: HYPERTONIC BLADDER
     Dosage: UNK
     Route: 048
     Dates: end: 20130122

REACTIONS (4)
  - Vision blurred [Recovered/Resolved]
  - Dysphemia [Recovered/Resolved]
  - Somnolence [Recovered/Resolved]
  - Dry mouth [Recovered/Resolved]
